FAERS Safety Report 4617277-X (Version None)
Quarter: 2005Q1

REPORT INFORMATION
  Report Type: 
  Country: None (occurrence: None)
  Receive Date: 20050323
  Receipt Date: 20050311
  Transmission Date: 20050727
  Serious: Yes (Hospitalization)
  Sender: FDA-Public Use
  Company Number: MY-MERCK-0503MYS00017

PATIENT
  Sex: Male

DRUGS (1)
  1. INVANZ [Suspect]
     Indication: APPENDICITIS PERFORATED
     Route: 042
     Dates: start: 20050301, end: 20050301

REACTIONS (1)
  - DRUG INEFFECTIVE [None]
